FAERS Safety Report 20762352 (Version 7)
Quarter: 2022Q3

REPORT INFORMATION
  Report Type: Report from Study
  Country: US (occurrence: US)
  Receive Date: 20220428
  Receipt Date: 20220919
  Transmission Date: 20221027
  Serious: No
  Sender: FDA-Public Use
  Company Number: US-GLAXOSMITHKLINE-US2022AMR068063

PATIENT

DRUGS (2)
  1. BELANTAMAB MAFODOTIN [Suspect]
     Active Substance: BELANTAMAB MAFODOTIN
     Indication: Plasma cell myeloma
     Dosage: 2.5 MG/KG, Z EVERY 3 WEEK (Q3W)
     Dates: start: 20220106
  2. BELANTAMAB MAFODOTIN [Suspect]
     Active Substance: BELANTAMAB MAFODOTIN
     Dosage: UNK
     Dates: start: 20220208

REACTIONS (13)
  - Keratopathy [Recovered/Resolved]
  - Visual acuity reduced [Unknown]
  - Night blindness [Recovered/Resolved]
  - Photophobia [Recovered/Resolved]
  - Dry eye [Not Recovered/Not Resolved]
  - Foreign body sensation in eyes [Recovered/Resolved]
  - Astigmatism [Unknown]
  - Corneal pachymetry [Unknown]
  - Vision blurred [Not Recovered/Not Resolved]
  - Diplopia [Not Recovered/Not Resolved]
  - Treatment delayed [Unknown]
  - Madarosis [Not Recovered/Not Resolved]
  - Medical procedure [Recovered/Resolved]

NARRATIVE: CASE EVENT DATE: 20220101
